FAERS Safety Report 10384653 (Version 1)
Quarter: 2014Q3

REPORT INFORMATION
  Report Type: Spontaneous
  Country: US (occurrence: None)
  Receive Date: 20140813
  Receipt Date: 20140813
  Transmission Date: 20150326
  Serious: Yes (Life-Threatening, Hospitalization)
  Sender: FDA-Public Use
  Company Number: None

PATIENT
  Age: 55 Year
  Sex: Female
  Weight: 68.31 kg

DRUGS (2)
  1. LISINOPRIL. [Concomitant]
     Active Substance: LISINOPRIL
  2. CIPROFLOXACIN  HCL [Suspect]
     Active Substance: CIPROFLOXACIN HYDROCHLORIDE
     Indication: URINARY TRACT INFECTION
     Dosage: 2 A DAY
     Route: 048
     Dates: start: 20140204, end: 20140211

REACTIONS (8)
  - Asthenia [None]
  - Gastroenteritis viral [None]
  - Weight decreased [None]
  - Poisoning [None]
  - Skin warm [None]
  - Renal failure [None]
  - Abdominal pain upper [None]
  - Dialysis [None]

NARRATIVE: CASE EVENT DATE: 20140211
